FAERS Safety Report 8031963-3 (Version None)
Quarter: 2012Q1

REPORT INFORMATION
  Report Type: 
  Country: None (occurrence: None)
  Receive Date: 20120109
  Receipt Date: 20110406
  Transmission Date: 20120608
  Serious: No
  Sender: FDA-Public Use
  Company Number: US-ABBOTT-11P-163-0716941-00

PATIENT
  Age: 31 Year
  Sex: Female

DRUGS (2)
  1. VICODIN [Suspect]
     Indication: ANALGESIC THERAPY
  2. VICODIN [Suspect]
     Indication: FIBROMYALGIA

REACTIONS (3)
  - TREMOR [None]
  - ABDOMINAL DISCOMFORT [None]
  - HYPERHIDROSIS [None]
